FAERS Safety Report 5734146-2 (Version None)
Quarter: 2008Q2

REPORT INFORMATION
  Report Type: 
  Country: None (occurrence: None)
  Receive Date: 20080509
  Receipt Date: 20080421
  Transmission Date: 20081010
  Serious: Yes (Congenital Anomaly)
  Sender: FDA-Public Use
  Company Number: GB-ABBOTT-08P-167-0435025-00

PATIENT
  Sex: Male

DRUGS (1)
  1. EPILUM [Suspect]
     Indication: DRUG EXPOSURE DURING PREGNANCY
     Route: 064

REACTIONS (30)
  - ABNORMAL BEHAVIOUR [None]
  - AGGRESSION [None]
  - ANORECTAL DISORDER [None]
  - ASPERGER'S DISORDER [None]
  - ATTENTION DEFICIT/HYPERACTIVITY DISORDER [None]
  - AUTISM SPECTRUM DISORDER [None]
  - CHOKING [None]
  - COMMUNICATION DISORDER [None]
  - CONGENITAL NOSE MALFORMATION [None]
  - CONSTIPATION [None]
  - DEVELOPMENTAL DELAY [None]
  - DISTRACTIBILITY [None]
  - DISTURBANCE IN ATTENTION [None]
  - DRUG EXPOSURE DURING PREGNANCY [None]
  - DYSMORPHISM [None]
  - EATING DISORDER [None]
  - EDUCATIONAL PROBLEM [None]
  - ENURESIS [None]
  - FOETAL ANTICONVULSANT SYNDROME [None]
  - FOOT DEFORMITY [None]
  - HYPERACUSIS [None]
  - PAIN IN EXTREMITY [None]
  - RETCHING [None]
  - SCREAMING [None]
  - SERUM FERRITIN NORMAL [None]
  - SLEEP DISORDER [None]
  - SNORING [None]
  - SPEECH DISORDER DEVELOPMENTAL [None]
  - TOOTH DISORDER [None]
  - VOMITING [None]
